FAERS Safety Report 11449060 (Version 6)
Quarter: 2016Q1

REPORT INFORMATION
  Report Type: Report from Study
  Country: GB (occurrence: GB)
  Receive Date: 20150902
  Receipt Date: 20160122
  Transmission Date: 20160525
  Serious: Yes (Death, Hospitalization)
  Sender: FDA-Public Use
  Company Number: GB-ROCHE-1588876

PATIENT
  Age: 43 Year
  Sex: Female
  Weight: 80.6 kg

DRUGS (28)
  1. DOXYCYCLINE. [Concomitant]
     Active Substance: DOXYCYCLINE
     Indication: MALAISE
     Route: 065
     Dates: start: 201505
  2. ONDANSETRON [Concomitant]
     Active Substance: ONDANSETRON
     Route: 065
     Dates: start: 201502
  3. CHLORPHENAMINE [Concomitant]
     Active Substance: CHLORPHENIRAMINE MALEATE
     Dosage: ONCE
     Route: 042
     Dates: start: 20150226, end: 20150806
  4. ZOPICLONE [Concomitant]
     Active Substance: ZOPICLONE
     Route: 048
     Dates: start: 201502
  5. TRAMADOL. [Concomitant]
     Active Substance: TRAMADOL
     Route: 048
     Dates: start: 201502
  6. SENNA [Concomitant]
     Active Substance: SENNA LEAF\SENNOSIDES\SENNOSIDES A AND B
     Route: 048
     Dates: start: 201504
  7. LACTULOSE. [Concomitant]
     Active Substance: LACTULOSE
     Route: 048
     Dates: start: 20150127, end: 20150801
  8. PERTUZUMAB [Suspect]
     Active Substance: PERTUZUMAB
     Route: 042
     Dates: end: 20150508
  9. SALBUTAMOL [Concomitant]
     Active Substance: ALBUTEROL
     Dosage: INHALATION
     Route: 065
     Dates: start: 20150602
  10. HYDROCORTISONE. [Concomitant]
     Active Substance: HYDROCORTISONE
     Dosage: ONCE
     Route: 042
     Dates: start: 20150226, end: 20150806
  11. METOCLOPRAMIDE. [Concomitant]
     Active Substance: METOCLOPRAMIDE
     Route: 048
     Dates: start: 20150226, end: 201508
  12. PARACETAMOL [Concomitant]
     Active Substance: ACETAMINOPHEN
     Route: 048
     Dates: start: 201502
  13. MORPHINE SULFATE. [Concomitant]
     Active Substance: MORPHINE SULFATE
     Route: 048
     Dates: start: 201502
  14. DEXAMETHASONE. [Concomitant]
     Active Substance: DEXAMETHASONE
     Route: 048
     Dates: start: 201502, end: 20150823
  15. DOXYCYCLINE. [Concomitant]
     Active Substance: DOXYCYCLINE
     Route: 048
     Dates: start: 20150603, end: 20150608
  16. LORAZEPAM. [Concomitant]
     Active Substance: LORAZEPAM
     Route: 048
     Dates: start: 201502
  17. OXYGEN THERAPY [Concomitant]
     Active Substance: OXYGEN
     Dosage: INHALANT
     Route: 065
     Dates: start: 201502
  18. BISOPROLOL [Concomitant]
     Active Substance: BISOPROLOL
     Route: 065
     Dates: start: 201504
  19. SALBUTAMOL [Concomitant]
     Active Substance: ALBUTEROL
     Indication: MALAISE
     Dosage: NEBULIZED
     Route: 065
     Dates: start: 201504
  20. ONDANSETRON [Concomitant]
     Active Substance: ONDANSETRON
     Route: 048
     Dates: start: 20150226, end: 20150424
  21. TRASTUZUMAB EMTANSINE [Suspect]
     Active Substance: ADO-TRASTUZUMAB EMTANSINE
     Indication: BREAST CANCER METASTATIC
     Route: 042
     Dates: start: 20150604
  22. PACLITAXEL. [Suspect]
     Active Substance: PACLITAXEL
     Indication: BREAST CANCER METASTATIC
     Dosage: MOST RECENT DOSE RECEIVED ON 22/05/2015
     Route: 042
     Dates: start: 20150226, end: 20150522
  23. PERTUZUMAB [Suspect]
     Active Substance: PERTUZUMAB
     Indication: BREAST CANCER METASTATIC
     Dosage: MOST RECENT DOSE RECEIVED ON 08/MAY/2015
     Route: 042
     Dates: start: 20150226
  24. TRASTUZUMAB [Suspect]
     Active Substance: TRASTUZUMAB
     Indication: BREAST CANCER METASTATIC
     Route: 058
     Dates: start: 20150226, end: 20150508
  25. OXYGEN THERAPY [Concomitant]
     Active Substance: OXYGEN
     Route: 065
     Dates: start: 20150410
  26. DALTEPARIN [Concomitant]
     Active Substance: DALTEPARIN
     Dosage: 15000 UNIT
     Route: 058
     Dates: start: 201504
  27. DEXAMETHASONE. [Concomitant]
     Active Substance: DEXAMETHASONE
     Route: 042
     Dates: start: 20150823, end: 20150823
  28. GRANISETRON [Concomitant]
     Active Substance: GRANISETRON
     Dosage: ONCE
     Route: 042
     Dates: start: 20150226, end: 20150806

REACTIONS (14)
  - Pneumonia [Not Recovered/Not Resolved]
  - Supraventricular tachycardia [Recovered/Resolved with Sequelae]
  - Rash [Not Recovered/Not Resolved]
  - Incontinence [Unknown]
  - Vomiting [Unknown]
  - Depressed mood [Unknown]
  - Dyspnoea [Not Recovered/Not Resolved]
  - Dyspepsia [Not Recovered/Not Resolved]
  - Dry mouth [Unknown]
  - Malaise [Not Recovered/Not Resolved]
  - Headache [Unknown]
  - Sepsis [Recovered/Resolved with Sequelae]
  - Lower respiratory tract infection [Recovered/Resolved with Sequelae]
  - Dizziness [Not Recovered/Not Resolved]

NARRATIVE: CASE EVENT DATE: 20150410
